FAERS Safety Report 9438328 (Version 4)
Quarter: 2014Q4

REPORT INFORMATION
  Report Type: Spontaneous
  Country: US (occurrence: US)
  Receive Date: 20130802
  Receipt Date: 20141215
  Transmission Date: 20150529
  Serious: Yes (Hospitalization)
  Sender: FDA-Public Use
  Company Number: US-BAYER-2013-093330

PATIENT
  Age: 37 Year
  Sex: Female
  Weight: 79 kg

DRUGS (4)
  1. MIRENA [Suspect]
     Active Substance: LEVONORGESTREL
     Indication: CONTRACEPTION
     Dosage: 20 MCG/24HR, CONT
     Route: 015
     Dates: start: 20110927, end: 20111125
  2. METFORMIN [Concomitant]
     Active Substance: METFORMIN HYDROCHLORIDE
     Indication: MENORRHAGIA
     Dosage: UNK
     Dates: start: 2009
  3. LEVOTHYROXINE [Concomitant]
     Active Substance: LEVOTHYROXINE
     Dosage: 25 ?G, QID
     Route: 048
  4. IRON [Concomitant]
     Active Substance: IRON
     Dosage: 235 MG, QID
     Route: 048

REACTIONS (5)
  - Uterine perforation [None]
  - Device issue [None]
  - Pain [None]
  - Anxiety [None]
  - Embedded device [None]

NARRATIVE: CASE EVENT DATE: 201111
